APPROVED DRUG PRODUCT: DIVALPROEX SODIUM
Active Ingredient: DIVALPROEX SODIUM
Strength: EQ 250MG VALPROIC ACID
Dosage Form/Route: TABLET, EXTENDED RELEASE;ORAL
Application: A203730 | Product #001 | TE Code: AB
Applicant: AMNEAL PHARMACEUTICALS
Approved: May 29, 2015 | RLD: No | RS: No | Type: RX